FAERS Safety Report 6042531-7 (Version None)
Quarter: 2009Q1

REPORT INFORMATION
  Report Type: 
  Country: None (occurrence: None)
  Receive Date: 20090118
  Receipt Date: 20090107
  Transmission Date: 20090719
  Serious: Yes (Hospitalization)
  Sender: FDA-Public Use
  Company Number: IT-PFIZER INC-2008152443

PATIENT
  Age: 60 Year
  Sex: Female

DRUGS (1)
  1. CABASER [Suspect]
     Dates: start: 20020101, end: 20050101

REACTIONS (4)
  - ATRIAL FIBRILLATION [None]
  - BRONCHITIS [None]
  - CARDIAC FAILURE [None]
  - CARDIAC VALVE SCLEROSIS [None]
